FAERS Safety Report 24283122 (Version 1)
Quarter: 2024Q3

REPORT INFORMATION
  Report Type: Spontaneous
  Country: US (occurrence: US)
  Receive Date: 20240904
  Receipt Date: 20240904
  Transmission Date: 20241016
  Serious: No
  Sender: SAPTALIS PHARMACEUTICALS
  Company Number: US-Saptalis Pharmaceuticals LLC-2161203

PATIENT
  Sex: Female

DRUGS (1)
  1. METFORMIN HYDROCHLORIDE [Suspect]
     Active Substance: METFORMIN HYDROCHLORIDE
     Route: 048

REACTIONS (3)
  - Throat irritation [Unknown]
  - Dysgeusia [Unknown]
  - Abdominal pain upper [Unknown]
